FAERS Safety Report 8993095 (Version 1)
Quarter: 2013Q1

REPORT INFORMATION
  Report Type: Spontaneous
  Country: TN (occurrence: TN)
  Receive Date: 20130102
  Receipt Date: 20130102
  Transmission Date: 20140127
  Serious: Yes (Death)
  Sender: FDA-Public Use
  Company Number: TN-ROCHE-1175979

PATIENT
  Age: 53 Year
  Sex: Male

DRUGS (6)
  1. ALTEPLASE [Suspect]
     Indication: MYOCARDIAL INFARCTION
     Route: 042
     Dates: start: 20101108, end: 20101108
  2. HEPARIN [Concomitant]
  3. ASPEGIC [Concomitant]
  4. MOPRAL (FRANCE) [Concomitant]
  5. CLOPIDOGREL [Concomitant]
  6. HYPOTENS [Concomitant]

REACTIONS (1)
  - Haemorrhagic stroke [Fatal]
